FAERS Safety Report 9632328 (Version 1)
Quarter: 2013Q4

REPORT INFORMATION
  Report Type: Spontaneous
  Country: US (occurrence: None)
  Receive Date: 20131018
  Receipt Date: 20131018
  Transmission Date: 20140711
  Serious: No
  Sender: FDA-Public Use
  Company Number: None

PATIENT
  Sex: 0

DRUGS (1)
  1. NEUPRO [Suspect]
     Dosage: 24 HR PATCH
     Dates: start: 20130703

REACTIONS (3)
  - Hallucination [None]
  - Delirium [None]
  - Abnormal behaviour [None]
